FAERS Safety Report 6736847-6 (Version None)
Quarter: 2010Q2

REPORT INFORMATION
  Report Type: 
  Country: None (occurrence: None)
  Receive Date: 20100521
  Receipt Date: 20100512
  Transmission Date: 20101027
  Serious: Yes (Other)
  Sender: FDA-Public Use
  Company Number: US-AMGEN-QUU407275

PATIENT
  Sex: Male
  Weight: 55 kg

DRUGS (5)
  1. NPLATE [Suspect]
     Indication: IDIOPATHIC THROMBOCYTOPENIC PURPURA
     Route: 058
     Dates: start: 20090312, end: 20090910
  2. PROGRAF [Concomitant]
     Dates: start: 20090818
  3. VFEND [Concomitant]
     Dates: start: 20090818
  4. FOLIC ACID [Concomitant]
     Dates: start: 20090818
  5. ACYCLOVIR SODIUM [Concomitant]
     Dates: start: 20090818

REACTIONS (2)
  - DRUG INEFFECTIVE [None]
  - THERAPEUTIC RESPONSE DECREASED [None]
